FAERS Safety Report 9166883 (Version 2)
Quarter: 2013Q2

REPORT INFORMATION
  Report Type: Spontaneous
  Country: US (occurrence: US)
  Receive Date: 20130317
  Receipt Date: 20130514
  Transmission Date: 20140414
  Serious: No
  Sender: FDA-Public Use
  Company Number: US-009507513-1303USA003550

PATIENT
  Age: 62 Year
  Sex: Female
  Weight: 79.82 kg

DRUGS (4)
  1. ASMANEX TWISTHALER [Suspect]
     Indication: ASTHMA
     Dosage: 1 PUFFF INHALATION, ONCE DAILY
     Route: 055
     Dates: start: 20130228, end: 20130301
  2. ASMANEX TWISTHALER [Suspect]
     Indication: COUGH
  3. PROVENTIL [Concomitant]
     Route: 055
  4. LIPITOR [Concomitant]

REACTIONS (3)
  - Drug hypersensitivity [Recovered/Resolved]
  - Dyspnoea [Recovered/Resolved]
  - Abdominal distension [Recovered/Resolved]
